FAERS Safety Report 9943792 (Version 2)
Quarter: 2014Q1

REPORT INFORMATION
  Report Type: Spontaneous
  Country: US (occurrence: US)
  Receive Date: 20140303
  Receipt Date: 20140324
  Transmission Date: 20141002
  Serious: Yes (Hospitalization)
  Sender: FDA-Public Use
  Company Number: US-ASTRAZENECA-2014SE12749

PATIENT
  Sex: Male

DRUGS (6)
  1. SYNAGIS [Suspect]
     Dosage: 100MG/1ML, 15MG/KG
     Route: 030
     Dates: start: 20140116
  2. SYNAGIS [Suspect]
     Route: 030
  3. SYNAGIS [Suspect]
     Route: 030
     Dates: end: 20140303
  4. ALBUTEROL [Concomitant]
  5. PREVACID [Concomitant]
  6. IRON [Concomitant]

REACTIONS (1)
  - Bronchiolitis [Recovered/Resolved]
